FAERS Safety Report 9955047 (Version 2)
Quarter: 2014Q1

REPORT INFORMATION
  Report Type: Spontaneous
  Country: PR (occurrence: PR)
  Receive Date: 20140304
  Receipt Date: 20140304
  Transmission Date: 20141002
  Serious: No
  Sender: FDA-Public Use
  Company Number: PR-ABBVIE-13P-131-1057868-00

PATIENT
  Age: 65 Year
  Sex: Female
  Weight: 85.81 kg

DRUGS (8)
  1. HUMIRA [Suspect]
     Indication: RHEUMATOID ARTHRITIS
     Route: 058
     Dates: start: 2006
  2. SYNTHROID [Concomitant]
     Indication: HYPOTHYROIDISM
     Route: 048
     Dates: start: 1975
  3. FOLIC ACID [Concomitant]
     Indication: THALASSAEMIA BETA
     Route: 048
  4. PRILOSEC [Concomitant]
     Indication: GASTRITIS
     Dosage: 1 TAB DAILY
     Route: 048
  5. PROTONIX [Concomitant]
     Indication: GASTRITIS
     Dosage: 1 TAB DAILY
     Route: 048
  6. HYDROTHIAZIDE [Concomitant]
     Indication: HYPERTENSION
     Route: 048
  7. ATACAN [Concomitant]
     Indication: HYPERTENSION
     Route: 048
  8. METHOTREXATE [Concomitant]
     Indication: RHEUMATOID ARTHRITIS
     Route: 048
     Dates: start: 2006

REACTIONS (2)
  - Oropharyngeal pain [Recovered/Resolved]
  - Nasopharyngitis [Recovered/Resolved]
